FAERS Safety Report 8219949-7 (Version None)
Quarter: 2012Q1

REPORT INFORMATION
  Report Type: 
  Country: None (occurrence: None)
  Receive Date: 20120319
  Receipt Date: 20120316
  Transmission Date: 20120608
  Serious: Yes (Hospitalization)
  Sender: FDA-Public Use
  Company Number: GB-ROCHE-1049719

PATIENT
  Age: 35 Year
  Sex: Male
  Weight: 105 kg

DRUGS (2)
  1. TOCILIZUMAB [Suspect]
     Indication: RHEUMATOID ARTHRITIS
     Route: 042
     Dates: start: 20111028, end: 20120116
  2. AZATHIOPRINE [Concomitant]

REACTIONS (3)
  - ACUTE ABDOMEN [None]
  - PANCREATITIS ACUTE [None]
  - AMYLASE INCREASED [None]
